FAERS Safety Report 24876140 (Version 1)
Quarter: 2025Q1

REPORT INFORMATION
  Report Type: Spontaneous
  Country: JP (occurrence: JP)
  Receive Date: 20250123
  Receipt Date: 20250123
  Transmission Date: 20250408
  Serious: Yes (Other)
  Sender: NOVARTIS
  Company Number: JP-002147023-NVSJ2024JP004708

PATIENT
  Sex: Female
  Weight: 49 kg

DRUGS (2)
  1. FEMARA [Suspect]
     Active Substance: LETROZOLE
     Indication: Infertility
     Dosage: 2.5 MG, QD
     Route: 048
     Dates: start: 20240302, end: 20240306
  2. FEMARA [Suspect]
     Active Substance: LETROZOLE
     Indication: Ovulation induction
     Route: 048
     Dates: start: 20240404, end: 20240408

REACTIONS (2)
  - Foetal death [Unknown]
  - Maternal exposure during pregnancy [Unknown]
